FAERS Safety Report 6834858-3 (Version None)
Quarter: 2010Q3

REPORT INFORMATION
  Report Type: 
  Country: None (occurrence: None)
  Receive Date: 20100712
  Receipt Date: 20070423
  Transmission Date: 20110219
  Serious: No
  Sender: FDA-Public Use
  Company Number: US-PFIZER INC-2007034008

PATIENT
  Sex: Female
  Weight: 65 kg

DRUGS (10)
  1. CHANTIX [Suspect]
     Indication: SMOKING CESSATION THERAPY
     Route: 048
     Dates: start: 20070414
  2. LEXAPRO [Concomitant]
  3. VITAMINS [Concomitant]
  4. CALCIUM [Concomitant]
  5. HYDROCHLOROTHIAZIDE [Concomitant]
  6. ACETYLSALICYLIC ACID [Concomitant]
  7. TIMOPTIC [Concomitant]
  8. TENORMIN [Concomitant]
  9. ALTACE [Concomitant]
  10. SERAX [Concomitant]

REACTIONS (6)
  - ABDOMINAL DISCOMFORT [None]
  - ABNORMAL DREAMS [None]
  - DEPRESSED MOOD [None]
  - FLATULENCE [None]
  - LETHARGY [None]
  - MALAISE [None]
